FAERS Safety Report 9634201 (Version 1)
Quarter: 2013Q4

REPORT INFORMATION
  Report Type: Spontaneous
  Country: TR (occurrence: None)
  Receive Date: 20131017
  Receipt Date: 20131017
  Transmission Date: 20140711
  Serious: Yes (Life-Threatening, Hospitalization)
  Sender: FDA-Public Use
  Company Number: B0930558A

PATIENT
  Age: 18 Year
  Sex: Female

DRUGS (2)
  1. CAPTOPRIL [Suspect]
     Indication: PRODUCT USED FOR UNKNOWN INDICATION
     Route: 048
  2. PROPAFENONE HYDROCHLORIDE [Suspect]
     Indication: PRODUCT USED FOR UNKNOWN INDICATION
     Route: 048

REACTIONS (14)
  - Toxicity to various agents [None]
  - Suicide attempt [None]
  - Loss of consciousness [None]
  - Coma scale abnormal [None]
  - Electrocardiogram QRS complex prolonged [None]
  - Cardiac arrest [None]
  - Haemodynamic instability [None]
  - Pulse absent [None]
  - Overdose [None]
  - Pupillary reflex impaired [None]
  - Blood pressure decreased [None]
  - Oxygen saturation decreased [None]
  - Ventricular arrhythmia [None]
  - Heart rate decreased [None]
